FAERS Safety Report 5488570-6 (Version None)
Quarter: 2007Q4

REPORT INFORMATION
  Report Type: 
  Country: None (occurrence: None)
  Receive Date: 20071017
  Receipt Date: 20071011
  Transmission Date: 20080405
  Serious: Yes (Hospitalization)
  Sender: FDA-Public Use
  Company Number: DE-SANOFI-SYNTHELABO-F01200701296

PATIENT
  Sex: Female

DRUGS (4)
  1. COTRIM [Concomitant]
     Dosage: 2 X 40 MG
     Route: 048
     Dates: start: 20071001
  2. ALLOPURINOL [Concomitant]
     Dosage: 2 X 100 MG
     Route: 048
     Dates: start: 20070930
  3. GEMZAR [Suspect]
     Route: 041
     Dates: start: 20070928, end: 20070928
  4. ELOXATIN [Suspect]
     Indication: NEOPLASM PROGRESSION
     Route: 041
     Dates: start: 20070928, end: 20070928

REACTIONS (2)
  - INTUSSUSCEPTION [None]
  - PYREXIA [None]
